FAERS Safety Report 22012747 (Version 2)
Quarter: 2023Q1

REPORT INFORMATION
  Report Type: Spontaneous
  Country: BR (occurrence: BR)
  Receive Date: 20230220
  Receipt Date: 20230323
  Transmission Date: 20230418
  Serious: No
  Sender: FDA-Public Use
  Company Number: BR-BAYER-2023A017773

PATIENT
  Age: 14 Year
  Sex: Male

DRUGS (7)
  1. MOXIFLOXACIN HYDROCHLORIDE [Suspect]
     Active Substance: MOXIFLOXACIN HYDROCHLORIDE
     Indication: Pneumonia
     Dosage: 1 DF, QD
     Route: 048
     Dates: start: 20230215, end: 20230221
  2. DESLORATADINE [Concomitant]
     Active Substance: DESLORATADINE
  3. NASONEX [Concomitant]
     Active Substance: MOMETASONE FUROATE
  4. BUDESONIDE [Concomitant]
     Active Substance: BUDESONIDE
  5. KOIDE D [Concomitant]
  6. DIPIRONA SODICA [Concomitant]
  7. FLUIMUCIL [Concomitant]
     Active Substance: ACETYLCYSTEINE

REACTIONS (1)
  - Product prescribing issue [None]
